FAERS Safety Report 5773473-X (Version None)
Quarter: 2008Q2

REPORT INFORMATION
  Report Type: 
  Country: None (occurrence: None)
  Receive Date: 20080616
  Receipt Date: 20080610
  Transmission Date: 20081010
  Serious: Yes (Hospitalization)
  Sender: FDA-Public Use
  Company Number: BE-BAYER-200712563GDS

PATIENT
  Age: 81 Year
  Sex: Female
  Weight: 80 kg

DRUGS (21)
  1. MOXIFLOXACIN I.V. [Suspect]
     Indication: ABDOMINAL INFECTION
     Route: 042
     Dates: start: 20070413, end: 20070417
  2. TAZOCIN [Concomitant]
     Indication: ABDOMINAL INFECTION
     Route: 042
     Dates: start: 20070418, end: 20070420
  3. DUOVENT [Concomitant]
     Indication: DRUG USE FOR UNKNOWN INDICATION
     Route: 055
     Dates: start: 20070415, end: 20070504
  4. ALPRAZOLAM [Concomitant]
     Indication: DRUG USE FOR UNKNOWN INDICATION
     Route: 048
     Dates: start: 20070416
  5. KONAKION LA [Concomitant]
     Indication: COAGULOPATHY
     Route: 042
     Dates: start: 20070416, end: 20070416
  6. HUMAN ALBUMINE [Concomitant]
     Indication: HYPOALBUMINAEMIA
     Route: 042
     Dates: start: 20070414, end: 20070414
  7. PERFUSALGAN [Concomitant]
     Indication: PAIN MANAGEMENT
     Route: 042
     Dates: start: 20070412
  8. PERFUSALGAN [Concomitant]
     Route: 042
     Dates: start: 20070408, end: 20070424
  9. ZANTAC [Concomitant]
     Indication: PROPHYLAXIS AGAINST GASTROINTESTINAL ULCER
     Route: 042
     Dates: start: 20070412, end: 20070419
  10. LITICAN [Concomitant]
     Indication: DRUG USE FOR UNKNOWN INDICATION
     Route: 042
     Dates: start: 20070412, end: 20070412
  11. CLEXANE [Concomitant]
     Indication: THROMBOSIS PROPHYLAXIS
     Route: 058
     Dates: start: 20070412, end: 20070414
  12. CALCIUM SANDOZ [CALCIUM GLUCONATE] [Concomitant]
     Indication: HYPOCALCAEMIA
     Route: 042
     Dates: start: 20070413, end: 20070413
  13. LYSOMUCIL [Concomitant]
     Indication: DRUG USE FOR UNKNOWN INDICATION
     Route: 048
     Dates: start: 20070423
  14. NEXIUM [Concomitant]
     Indication: PROPHYLAXIS AGAINST GASTROINTESTINAL ULCER
     Route: 042
     Dates: start: 20070418, end: 20070424
  15. NEXIUM [Concomitant]
     Route: 048
     Dates: start: 20070424
  16. SODIUM BICARBONATE [Concomitant]
     Indication: DRUG USE FOR UNKNOWN INDICATION
     Route: 042
     Dates: start: 20070418, end: 20070418
  17. TRADONAL [Concomitant]
     Indication: PAIN PROPHYLAXIS
     Route: 042
     Dates: start: 20070411, end: 20070420
  18. DAFALGAN [Concomitant]
     Indication: PAIN PROPHYLAXIS
     Route: 048
     Dates: start: 20070424
  19. LORAMET [Concomitant]
     Indication: SLEEP DISORDER
     Route: 048
     Dates: start: 20070425
  20. SOLUVITE [Concomitant]
     Indication: VITAMIN SUPPLEMENTATION
     Route: 042
     Dates: start: 20070417, end: 20070430
  21. NEUROBION [Concomitant]
     Indication: VITAMIN SUPPLEMENTATION
     Route: 042
     Dates: start: 20070417, end: 20070430

REACTIONS (2)
  - DYSPNOEA [None]
  - RESPIRATORY DISTRESS [None]
